FAERS Safety Report 6328999-7 (Version None)
Quarter: 2009Q3

REPORT INFORMATION
  Report Type: 
  Country: None (occurrence: None)
  Receive Date: 20090824
  Receipt Date: 20090824
  Transmission Date: 20100115
  Serious: Yes (Hospitalization)
  Sender: FDA-Public Use
  Company Number: None

PATIENT
  Sex: Male
  Weight: 96.1626 kg

DRUGS (17)
  1. VIMPAT [Suspect]
     Indication: EPILEPSY
     Dosage: 100MG BID PO
     Route: 048
     Dates: start: 20090721, end: 20090821
  2. TOPIRAMATE [Suspect]
     Indication: EPILEPSY
     Dosage: 200MG TID PO
     Route: 048
     Dates: start: 20070410, end: 20090807
  3. CARBAMAZEPINE [Concomitant]
  4. COMFREY-ALOE VERA [Concomitant]
  5. DIAZEPAM RECTAL [Concomitant]
  6. ERGOCALCIFEROL [Concomitant]
  7. GOLDENSEAL-MYRRH [Concomitant]
  8. IBUPROFEN [Concomitant]
  9. INSECT REPELLENT [Concomitant]
  10. LEVETIRACETAM [Concomitant]
  11. LEVOTHYROXINE [Concomitant]
  12. LORATADINE [Concomitant]
  13. LORAZEPAM [Concomitant]
  14. MAGNESIUM [Concomitant]
  15. BIFOVIDEN ID [Concomitant]
  16. CALCIUM CARBONATE [Concomitant]
  17. CARBAMAZEPINE [Concomitant]

REACTIONS (2)
  - DRUG EFFECT INCREASED [None]
  - SEDATION [None]
